FAERS Safety Report 18886133 (Version 1)
Quarter: 2021Q1

REPORT INFORMATION
  Report Type: Spontaneous
  Country: US (occurrence: US)
  Receive Date: 20210211
  Receipt Date: 20210211
  Transmission Date: 20210420
  Serious: Yes (Hospitalization)
  Sender: FDA-Public Use
  Company Number: None

PATIENT
  Age: 81 Year
  Sex: Male
  Weight: 115 kg

DRUGS (1)
  1. LISINOPRIL (LISINOPRIL 20MG TAB) [Suspect]
     Active Substance: LISINOPRIL
     Indication: HYPERTENSION
     Dates: start: 20040519, end: 20201227

REACTIONS (3)
  - Angioedema [None]
  - Swollen tongue [None]
  - Speech disorder [None]

NARRATIVE: CASE EVENT DATE: 20201227
